FAERS Safety Report 6197054-1 (Version None)
Quarter: 2009Q2

REPORT INFORMATION
  Report Type: 
  Country: None (occurrence: None)
  Receive Date: 20090520
  Receipt Date: 20090515
  Transmission Date: 20091009
  Serious: Yes (Death, Life-Threatening)
  Sender: FDA-Public Use
  Company Number: CA-SANOFI-SYNTHELABO-F01200900481

PATIENT
  Sex: Male
  Weight: 79.5 kg

DRUGS (7)
  1. MAXIDEX [Concomitant]
     Route: 047
  2. IMODIUM [Concomitant]
     Route: 048
  3. MAVIK [Concomitant]
     Route: 048
  4. NORVASC [Concomitant]
     Route: 048
  5. CASODEX [Suspect]
     Route: 048
     Dates: start: 20081016, end: 20081115
  6. TAXOTERE [Suspect]
     Route: 042
     Dates: start: 20081016, end: 20090402
  7. ELIGARD [Suspect]
     Indication: PROSTATE CANCER
     Route: 058
     Dates: start: 20081016, end: 20090402

REACTIONS (1)
  - PULMONARY EMBOLISM [None]
